FAERS Safety Report 9466620 (Version 2)
Quarter: 2013Q3

REPORT INFORMATION
  Report Type: Spontaneous
  Country: BR (occurrence: BR)
  Receive Date: 20130820
  Receipt Date: 20130820
  Transmission Date: 20140515
  Serious: Yes (Other)
  Sender: FDA-Public Use
  Company Number: PHHY2013BR060308

PATIENT
  Age: 9 Year
  Sex: Female

DRUGS (1)
  1. RITALIN LA [Suspect]
     Indication: DISTURBANCE IN ATTENTION
     Dosage: 1 DF, QD
     Route: 048
     Dates: start: 20130506

REACTIONS (5)
  - Dyspnoea [Recovered/Resolved]
  - Hallucination [Recovered/Resolved]
  - Nightmare [Recovered/Resolved]
  - Headache [Recovered/Resolved]
  - Heart rate increased [Recovering/Resolving]
